FAERS Safety Report 18643555 (Version 3)
Quarter: 2022Q3

REPORT INFORMATION
  Report Type: Spontaneous
  Country: FR (occurrence: FR)
  Receive Date: 20201221
  Receipt Date: 20220801
  Transmission Date: 20221027
  Serious: Yes (Hospitalization, Disabling, Other)
  Sender: FDA-Public Use
  Company Number: FR-TEVA-2020-FR-1857599

PATIENT
  Age: 52 Year
  Sex: Female
  Weight: 61 kg

DRUGS (12)
  1. ETHINYL ESTRADIOL\LEVONORGESTREL [Suspect]
     Active Substance: ETHINYL ESTRADIOL\LEVONORGESTREL
     Indication: Hyperandrogenism
     Dosage: UNK
     Route: 065
     Dates: start: 1998, end: 1999
  2. MIRENA [Suspect]
     Active Substance: LEVONORGESTREL
     Indication: Intrauterine contraception
     Dosage: UNK
     Route: 015
  3. CYPROTERONE ACETATE [Suspect]
     Active Substance: CYPROTERONE ACETATE
     Indication: Contraception
     Dosage: UNK, SEVEN DAYS PER MONTH
     Route: 065
     Dates: start: 1998, end: 1999
  4. CYPROTERONE ACETATE [Suspect]
     Active Substance: CYPROTERONE ACETATE
     Indication: Hormone replacement therapy
     Dosage: UNK, SEVEN DAYS PER MONTH
     Route: 065
     Dates: start: 2000, end: 2004
  5. CYPROTERONE ACETATE [Suspect]
     Active Substance: CYPROTERONE ACETATE
     Indication: Hyperandrogenism
     Dosage: UNK, SEVEN DAYS PER MONTH
     Route: 065
     Dates: start: 200507, end: 201108
  6. CYPROTERONE ACETATE [Suspect]
     Active Substance: CYPROTERONE ACETATE
     Dosage: 0.5 DF, TWENTY DAYS PER MONTH
     Route: 065
     Dates: start: 20120828, end: 201506
  7. ESTRADIOL [Suspect]
     Active Substance: ESTRADIOL
     Indication: Hormone replacement therapy
     Dosage: UNK
     Route: 065
     Dates: start: 200507, end: 201108
  8. CYPROTERONE ACETATE [Suspect]
     Active Substance: CYPROTERONE ACETATE
     Indication: Hyperandrogenism
     Dosage: UNK
     Route: 065
     Dates: start: 201012
  9. CYPROTERONE ACETATE [Suspect]
     Active Substance: CYPROTERONE ACETATE
     Dosage: UNK
     Dates: start: 201104
  10. DESOGESTREL\ETHINYL ESTRADIOL [Suspect]
     Active Substance: DESOGESTREL\ETHINYL ESTRADIOL
     Indication: Contraception
     Dosage: UNK
     Route: 048
     Dates: start: 2000, end: 2004
  11. ZOMIG [Concomitant]
     Active Substance: ZOLMITRIPTAN
     Dosage: UNK
  12. RIZATRIPTAN [Concomitant]
     Active Substance: RIZATRIPTAN
     Indication: Migraine
     Dosage: THREE OR FOUR TIMES PER WEEK

REACTIONS (14)
  - Facial paralysis [Unknown]
  - Oedema [Recovered/Resolved]
  - Intracranial tumour haemorrhage [Recovered/Resolved]
  - Intracranial pressure increased [Recovered/Resolved]
  - Headache [Recovered/Resolved]
  - Squamous cell carcinoma [Unknown]
  - Somnolence [Unknown]
  - Meningioma [Recovered/Resolved]
  - Cognitive disorder [Recovered/Resolved]
  - Hirsutism [Recovered/Resolved]
  - Nausea [Unknown]
  - Muscle tightness [Unknown]
  - Vomiting [Unknown]
  - Off label use [Unknown]

NARRATIVE: CASE EVENT DATE: 20140805
